FAERS Safety Report 4796254-2 (Version None)
Quarter: 2005Q4

REPORT INFORMATION
  Report Type: 
  Country: None (occurrence: None)
  Receive Date: 20051007
  Receipt Date: 20050926
  Transmission Date: 20060501
  Serious: Yes (Death, Other)
  Sender: FDA-Public Use
  Company Number: 2005134467

PATIENT
  Age: 47 Year
  Sex: Female
  Weight: 85.7298 kg

DRUGS (4)
  1. GLUCOTROL XL [Suspect]
     Indication: ILL-DEFINED DISORDER
     Dosage: (10 MG), ORAL
     Route: 048
     Dates: start: 20030101, end: 20030101
  2. SYNTHROID [Suspect]
  3. PROMETHAZINE [Concomitant]
  4. PROZAC [Concomitant]

REACTIONS (3)
  - BRONCHOSPASM [None]
  - DRUG DISPENSING ERROR [None]
  - OVERDOSE [None]
